FAERS Safety Report 7687565-1 (Version None)
Quarter: 2011Q3

REPORT INFORMATION
  Report Type: 
  Country: None (occurrence: None)
  Receive Date: 20110811
  Receipt Date: 20110721
  Transmission Date: 20111222
  Serious: Yes (Other)
  Sender: FDA-Public Use
  Company Number: 2011S1001062

PATIENT
  Age: 56 Year
  Sex: Female

DRUGS (2)
  1. ZYRTEC [Concomitant]
  2. ALIPZA (PITAVASTATIN) [Suspect]
     Indication: HYPERCHOLESTEROLAEMIA
     Dosage: 2 MG;1X;PO
     Route: 048
     Dates: start: 20110713, end: 20110714

REACTIONS (4)
  - LIP OEDEMA [None]
  - FACE OEDEMA [None]
  - THROAT TIGHTNESS [None]
  - DYSPHAGIA [None]
